FAERS Safety Report 8021471-8 (Version None)
Quarter: 2011Q4

REPORT INFORMATION
  Report Type: 
  Country: None (occurrence: None)
  Receive Date: 20111229
  Receipt Date: 20111213
  Transmission Date: 20120403
  Serious: Yes (Death, Other)
  Sender: FDA-Public Use
  Company Number: FK201102970

PATIENT
  Age: 76 Year
  Sex: Male

DRUGS (2)
  1. CARBOPLATIN [Suspect]
     Indication: LUNG ADENOCARCINOMA
  2. GEMCITABINE [Suspect]
     Indication: LUNG ADENOCARCINOMA

REACTIONS (14)
  - RESPIRATORY DISORDER [None]
  - PROGRESSIVE MULTIFOCAL LEUKOENCEPHALOPATHY [None]
  - MENTAL RETARDATION [None]
  - DYSARTHRIA [None]
  - HEMIPARESIS [None]
  - CONVULSION [None]
  - ATTENTION DEFICIT/HYPERACTIVITY DISORDER [None]
  - JC VIRUS INFECTION [None]
  - VIITH NERVE PARALYSIS [None]
  - COGNITIVE DISORDER [None]
  - SOMNOLENCE [None]
  - MUSCULAR WEAKNESS [None]
  - EXTENSOR PLANTAR RESPONSE [None]
  - LEUKOPENIA [None]
